FAERS Safety Report 6311586-4 (Version None)
Quarter: 2009Q3

REPORT INFORMATION
  Report Type: 
  Country: None (occurrence: None)
  Receive Date: 20090817
  Receipt Date: 20090810
  Transmission Date: 20100115
  Serious: Yes (Congenital Anomaly)
  Sender: FDA-Public Use
  Company Number: A0748059A

PATIENT
  Sex: Male

DRUGS (10)
  1. PAXIL [Suspect]
     Indication: DEPRESSION
     Dates: start: 20010101, end: 20050101
  2. VITAMIN AND MINERAL PRENATAL SUPPLEMENT W/ FOLIC ACID CAP [Concomitant]
  3. ZITHROMAX [Concomitant]
     Dates: start: 20010601
  4. VIBRAMYCIN [Concomitant]
     Dates: start: 20010601
  5. AMPICILLIN [Concomitant]
     Dates: start: 20010922
  6. GENTAMICIN [Concomitant]
     Dates: start: 20010922
  7. FLAGYL [Concomitant]
     Dates: start: 20010922
  8. MACROBID [Concomitant]
     Dates: start: 20010901
  9. ROBITUSSIN [Concomitant]
  10. MAALOX [Concomitant]

REACTIONS (3)
  - DRUG EXPOSURE DURING PREGNANCY [None]
  - HEART DISEASE CONGENITAL [None]
  - PULMONARY HYPERTENSION [None]
